FAERS Safety Report 18542734 (Version 2)
Quarter: 2021Q1

REPORT INFORMATION
  Report Type: Other
  Country: CA (occurrence: CA)
  Receive Date: 20201125
  Receipt Date: 20210225
  Transmission Date: 20210419
  Serious: Yes (Other)
  Sender: FDA-Public Use
  Company Number: CA-CELLTRION INC.-2020CA032009

PATIENT

DRUGS (29)
  1. ACETAMINOPHEN. [Concomitant]
     Active Substance: ACETAMINOPHEN
     Indication: PREMEDICATION
     Dosage: 650 MILLIGRAM
     Route: 048
  2. ADVAIR HFA [Concomitant]
     Active Substance: FLUTICASONE PROPIONATE\SALMETEROL XINAFOATE
  3. NASONEX [Concomitant]
     Active Substance: MOMETASONE FUROATE
  4. ALTACE [Concomitant]
     Active Substance: RAMIPRIL
  5. BENADRYL [Concomitant]
     Active Substance: DIPHENHYDRAMINE HYDROCHLORIDE
     Indication: PREMEDICATION
     Dosage: 50 MILLIGRAM
     Route: 048
  6. MOMETASONE [Concomitant]
     Active Substance: MOMETASONE
     Indication: PRODUCT USED FOR UNKNOWN INDICATION
  7. TERBUTALINE SULFATE. [Concomitant]
     Active Substance: TERBUTALINE SULFATE
  8. TYLENOL [Concomitant]
     Active Substance: ACETAMINOPHEN
     Indication: PREMEDICATION
     Dosage: 650 MILLIGRAM
     Route: 048
  9. TYLENOL [Concomitant]
     Active Substance: ACETAMINOPHEN
     Dosage: 650 MILLIGRAM
     Route: 048
  10. FUROSEMIDE. [Concomitant]
     Active Substance: FUROSEMIDE
     Route: 065
  11. RITUXIMAB (UNKNOWN) [Suspect]
     Active Substance: RITUXIMAB
     Indication: MYOSITIS
     Dosage: 1000 MILLIGRAM,  1 EVERY 4 MONTHS
     Route: 042
  12. DIAMICRON [Concomitant]
     Active Substance: GLICLAZIDE
  13. PREDNISONE. [Concomitant]
     Active Substance: PREDNISONE
  14. MYCOPHENOLATE MOFETIL. [Suspect]
     Active Substance: MYCOPHENOLATE MOFETIL
     Indication: PRODUCT USED FOR UNKNOWN INDICATION
     Dosage: UNK
     Route: 065
  15. EZETROL [Concomitant]
     Active Substance: EZETIMIBE
  16. SODIUM CARBOXYMETHYLCELLULOSE [Concomitant]
     Active Substance: CARBOXYMETHYLCELLULOSE SODIUM
  17. MYCOPHENOLATE MOFETIL. [Suspect]
     Active Substance: MYCOPHENOLATE MOFETIL
     Dosage: UNK
     Route: 065
  18. NEURONTIN [Concomitant]
     Active Substance: GABAPENTIN
  19. SOLU?MEDROL [Concomitant]
     Active Substance: METHYLPREDNISOLONE SODIUM SUCCINATE
     Indication: PREMEDICATION
     Dosage: 100 MILLIGRAM
     Route: 042
  20. TYLENOL [Concomitant]
     Active Substance: ACETAMINOPHEN
     Indication: PREMEDICATION
     Dosage: 650 MILLIGRAM
     Route: 048
  21. VALTREX [Suspect]
     Active Substance: VALACYCLOVIR HYDROCHLORIDE
     Indication: PRODUCT USED FOR UNKNOWN INDICATION
     Route: 065
  22. ATIVAN [Concomitant]
     Active Substance: LORAZEPAM
  23. ROSUVASTATIN CALCIUM. [Concomitant]
     Active Substance: ROSUVASTATIN CALCIUM
  24. TYLENOL [Concomitant]
     Active Substance: ACETAMINOPHEN
     Dosage: 500 MILLIGRAM
     Route: 048
  25. RITUXIMAB (UNKNOWN) [Suspect]
     Active Substance: RITUXIMAB
     Indication: OFF LABEL USE
     Dosage: 1000 MILLIGRAM
     Route: 042
  26. RITUXIMAB (UNKNOWN) [Suspect]
     Active Substance: RITUXIMAB
     Dosage: 1000 MILLIGRAM
     Route: 042
  27. ASA [Concomitant]
     Active Substance: ASPIRIN
  28. METHYLPREDNISOLONE. [Concomitant]
     Active Substance: METHYLPREDNISOLONE
     Dosage: 100 MILLIGRAM
     Route: 042
  29. PENNSAID [Concomitant]
     Active Substance: DICLOFENAC SODIUM

REACTIONS (15)
  - Oxygen saturation decreased [Not Recovered/Not Resolved]
  - Pulmonary hypertension [Not Recovered/Not Resolved]
  - Weight decreased [Not Recovered/Not Resolved]
  - Blood pressure fluctuation [Not Recovered/Not Resolved]
  - Off label use [Not Recovered/Not Resolved]
  - Body temperature decreased [Not Recovered/Not Resolved]
  - Cytomegalovirus infection [Not Recovered/Not Resolved]
  - Intentional product use issue [Not Recovered/Not Resolved]
  - Blood pressure systolic increased [Not Recovered/Not Resolved]
  - Cataract [Not Recovered/Not Resolved]
  - Heart rate decreased [Not Recovered/Not Resolved]
  - Pneumonia [Not Recovered/Not Resolved]
  - Diastolic dysfunction [Not Recovered/Not Resolved]
  - Infusion related reaction [Not Recovered/Not Resolved]
  - Drug ineffective [Not Recovered/Not Resolved]
